FAERS Safety Report 9508499 (Version 1)
Quarter: 2013Q3

REPORT INFORMATION
  Report Type: Spontaneous
  Country: US (occurrence: US)
  Receive Date: 20130909
  Receipt Date: 20130909
  Transmission Date: 20140515
  Serious: No
  Sender: FDA-Public Use
  Company Number: US-PFIZER INC-2013257079

PATIENT
  Age: 48 Year
  Sex: Female
  Weight: 47.62 kg

DRUGS (3)
  1. XELJANZ [Suspect]
     Dosage: 5 MG, 2X/DAY
     Route: 048
  2. VITAMIN D [Concomitant]
     Dosage: 1000 IU, UNK
  3. IBUPROFEN [Concomitant]
     Dosage: 200 MG, UNK

REACTIONS (2)
  - Anxiety [Unknown]
  - Tremor [Unknown]
